FAERS Safety Report 9200106 (Version 1)
Quarter: 2013Q1

REPORT INFORMATION
  Report Type: Spontaneous
  Country: IE (occurrence: IE)
  Receive Date: 20130329
  Receipt Date: 20130329
  Transmission Date: 20140127
  Serious: Yes (Other)
  Sender: FDA-Public Use
  Company Number: IE-B.I. PHARMACEUTICALS,INC./RIDGEFIELD-2013-UK-00386UK

PATIENT
  Age: 87 Year
  Sex: Female
  Weight: 78 kg

DRUGS (2)
  1. SPIRIVA RESPIMAT [Suspect]
     Indication: ASTHMA
     Route: 055
     Dates: start: 20120217, end: 20120312
  2. SPIRIVA RESPIMAT [Suspect]
     Indication: CHRONIC OBSTRUCTIVE PULMONARY DISEASE

REACTIONS (1)
  - Nausea [Recovered/Resolved]
